FAERS Safety Report 5270897-4 (Version None)
Quarter: 2007Q1

REPORT INFORMATION
  Report Type: 
  Country: None (occurrence: None)
  Receive Date: 20070321
  Receipt Date: 20070315
  Transmission Date: 20070707
  Serious: Yes (Death, Disabling)
  Sender: FDA-Public Use
  Company Number: PHBS2007IT04708

PATIENT
  Age: 43 Year
  Sex: Female

DRUGS (1)
  1. ZOMERA [Suspect]
     Indication: BREAST CANCER RECURRENT
     Route: 042
     Dates: start: 20020101, end: 20060501

REACTIONS (3)
  - DEATH [None]
  - DENTAL CLEANING [None]
  - OSTEONECROSIS [None]
